FAERS Safety Report 11090256 (Version 1)
Quarter: 2015Q2

REPORT INFORMATION
  Report Type: Spontaneous
  Country: MX (occurrence: MX)
  Receive Date: 20150505
  Receipt Date: 20150505
  Transmission Date: 20150821
  Serious: Yes (Other)
  Sender: FDA-Public Use
  Company Number: MX-PFIZER INC-2015150755

PATIENT
  Age: 45 Year
  Sex: Female

DRUGS (3)
  1. KRIADEX [Concomitant]
     Indication: INSOMNIA
  2. EFFEXOR [Suspect]
     Active Substance: VENLAFAXINE HYDROCHLORIDE
     Indication: DEPRESSION
     Dosage: 75 MG, 1X/DAY
     Route: 048
     Dates: start: 2010
  3. KRIADEX [Concomitant]
     Indication: FEELING OF RELAXATION
     Dosage: 2 MG, UNK
     Dates: start: 2010

REACTIONS (1)
  - Drug dependence [Not Recovered/Not Resolved]
